FAERS Safety Report 17105306 (Version 1)
Quarter: 2019Q4

REPORT INFORMATION
  Report Type: Spontaneous
  Country: US (occurrence: US)
  Receive Date: 20191203
  Receipt Date: 20191203
  Transmission Date: 20200122
  Serious: No
  Sender: FDA-Public Use
  Company Number: US-SA-2019SA332119

PATIENT
  Sex: Female

DRUGS (8)
  1. ZOLPIDEM [Concomitant]
     Active Substance: ZOLPIDEM TARTRATE
     Dosage: UNK UNK, UNK
  2. CIPROFLOXACIN. [Concomitant]
     Active Substance: CIPROFLOXACIN
     Dosage: UNK UNK, UNK
  3. LEVOTHYROXIN [Concomitant]
     Active Substance: LEVOTHYROXINE
     Dosage: UNK UNK, UNK
  4. PRALUENT [Suspect]
     Active Substance: ALIROCUMAB
     Indication: TYPE IIA HYPERLIPIDAEMIA
     Dosage: 150 MG, QOW
     Route: 058
  5. TRIMETHOPRIM. [Concomitant]
     Active Substance: TRIMETHOPRIM
  6. NITROFURANTIN [Concomitant]
     Active Substance: NITROFURANTOIN
     Dosage: UNK UNK, UNK
  7. ESTRACE [Concomitant]
     Active Substance: ESTRADIOL
     Dosage: UNK UNK, UNK
  8. LOSARTAN POTASSSIUM [Concomitant]
     Dosage: UNK UNK, UNK

REACTIONS (2)
  - Muscular weakness [Unknown]
  - Gait inability [Unknown]
